FAERS Safety Report 20751016 (Version 1)
Quarter: 2022Q2

REPORT INFORMATION
  Report Type: Spontaneous
  Country: US (occurrence: None)
  Receive Date: 20220426
  Receipt Date: 20220426
  Transmission Date: 20220721
  Serious: Yes (Hospitalization)
  Sender: FDA-Public Use
  Company Number: None

PATIENT
  Age: 28 Year
  Sex: Female

DRUGS (5)
  1. NEXAVAR [Suspect]
     Active Substance: SORAFENIB
     Indication: Neoplasm
     Dosage: FREQUENCY : DAILY;?
     Route: 048
     Dates: start: 20211230
  2. NEXAVAR [Suspect]
     Active Substance: SORAFENIB
     Indication: Connective tissue neoplasm
  3. NEXAVAR [Suspect]
     Active Substance: SORAFENIB
     Indication: Soft tissue neoplasm
  4. NEXAVAR [Suspect]
     Active Substance: SORAFENIB
     Indication: Desmoid tumour
  5. NEXAVAR [Suspect]
     Active Substance: SORAFENIB
     Indication: Desmoid tumour

REACTIONS (1)
  - Myocardial infarction [None]

NARRATIVE: CASE EVENT DATE: 20220423
